FAERS Safety Report 6080755-3 (Version None)
Quarter: 2009Q1

REPORT INFORMATION
  Report Type: 
  Country: None (occurrence: None)
  Receive Date: 20090217
  Receipt Date: 20090210
  Transmission Date: 20090719
  Serious: Yes (Hospitalization, Other)
  Sender: FDA-Public Use
  Company Number: US-TEVA-185259USA

PATIENT
  Age: 82 Year
  Sex: Female

DRUGS (1)
  1. CIPROFLOXACIN HYDROCHLORIDE 250 MG, 500 MG + 750 MG TABLETS [Suspect]
     Indication: GASTROINTESTINAL INFECTION
     Dates: start: 20081028

REACTIONS (4)
  - ASTHENIA [None]
  - COMA [None]
  - CONVULSION [None]
  - PSYCHOTIC DISORDER [None]
